FAERS Safety Report 5293456-6 (Version None)
Quarter: 2007Q2

REPORT INFORMATION
  Report Type: 
  Country: None (occurrence: None)
  Receive Date: 20070411
  Receipt Date: 20070404
  Transmission Date: 20071010
  Serious: Yes (Hospitalization)
  Sender: FDA-Public Use
  Company Number: US-SANOFI-SYNTHELABO-F01200700438

PATIENT
  Sex: Female

DRUGS (8)
  1. PEPCID [Concomitant]
     Route: 065
     Dates: start: 20070305
  2. LISINOPRIL [Concomitant]
     Route: 065
     Dates: start: 20070302
  3. GLYBURIDE [Concomitant]
     Route: 065
     Dates: start: 19970615
  4. PHENERGAN HCL [Concomitant]
     Route: 065
     Dates: start: 20070305
  5. METOPROLOL SUCCINATE [Concomitant]
     Route: 065
     Dates: start: 19970615
  6. BEVACIZUMAB [Suspect]
     Route: 042
     Dates: start: 20070302, end: 20070302
  7. OXALIPLATIN [Suspect]
     Indication: COLORECTAL CANCER METASTATIC
     Route: 042
     Dates: start: 20070302, end: 20070302
  8. CAPECITABINE [Suspect]
     Dosage: 3000 MG GIVEN TWICE DAILY EVERY TWO WEEKS
     Route: 048

REACTIONS (1)
  - BUNDLE BRANCH BLOCK LEFT [None]
